FAERS Safety Report 20103308 (Version 1)
Quarter: 2021Q4

REPORT INFORMATION
  Report Type: Report from Study
  Country: DE (occurrence: None)
  Receive Date: 20211123
  Receipt Date: 20211123
  Transmission Date: 20220303
  Serious: Yes (Hospitalization, Other)
  Sender: FDA-Public Use
  Company Number: DE-Merck Healthcare KGaA-9136560

PATIENT
  Age: 42 Year
  Sex: Male
  Weight: 100 kg

DRUGS (3)
  1. CLADRIBINE [Suspect]
     Active Substance: CLADRIBINE
     Indication: Relapsing-remitting multiple sclerosis
     Dosage: MONTH ONE THERAPY: TOOK 10 MG ON 10 JUL 2019 AND 20 MG ON 15 JUL 2019.
     Route: 048
     Dates: start: 20190710, end: 20190715
  2. CLADRIBINE [Suspect]
     Active Substance: CLADRIBINE
     Dosage: MONTH TWO THERAPY: MOST RECENT DOSE OF 20 MG PRIOR TO THE EVENT WAS GIVEN ON 15 AUG 2019
     Route: 048
     Dates: start: 20190810, end: 20190815
  3. CARBAMAZEPINE [Concomitant]
     Active Substance: CARBAMAZEPINE
     Indication: Prophylaxis
     Route: 048
     Dates: start: 20190710

REACTIONS (1)
  - Pneumonia [Recovered/Resolved]

NARRATIVE: CASE EVENT DATE: 20191113
